FAERS Safety Report 8435512-7 (Version None)
Quarter: 2012Q2

REPORT INFORMATION
  Report Type: 
  Country: None (occurrence: None)
  Receive Date: 20120614
  Receipt Date: 20120607
  Transmission Date: 20120825
  Serious: Yes (Hospitalization, Other)
  Sender: FDA-Public Use
  Company Number: CN-PFIZER INC-2012138859

PATIENT
  Age: 57 Year
  Sex: Female

DRUGS (3)
  1. CYCLOPHOSPHAMIDE [Concomitant]
     Indication: BREAST CANCER FEMALE
     Dosage: UNK G, 1X/DAY
     Route: 041
     Dates: start: 20100916, end: 20100916
  2. FLUOROURACIL [Concomitant]
     Dosage: 0.75G
     Route: 041
     Dates: start: 20100916, end: 20100916
  3. EPIRUBICIN HYDROCHLORIDE [Suspect]
     Dosage: 100 MG, 1X/DAY
     Route: 041
     Dates: start: 20100916, end: 20100916

REACTIONS (4)
  - VOMITING [None]
  - HEADACHE [None]
  - NAUSEA [None]
  - WHITE BLOOD CELL COUNT DECREASED [None]
